FAERS Safety Report 17756035 (Version 2)
Quarter: 2020Q3

REPORT INFORMATION
  Report Type: Other
  Country: DE (occurrence: DE)
  Receive Date: 20200507
  Receipt Date: 20200717
  Transmission Date: 20201102
  Serious: No
  Sender: FDA-Public Use
  Company Number: DE-ROCHE-2584242

PATIENT
  Age: 38 Year
  Sex: Female
  Weight: 68 kg

DRUGS (13)
  1. DEKRISTOL [Concomitant]
     Active Substance: CHOLECALCIFEROL
     Indication: VITAMIN D DEFICIENCY
     Route: 048
     Dates: start: 2016
  2. RANITIDIN [Concomitant]
     Active Substance: RANITIDINE HYDROCHLORIDE
     Indication: PROPHYLAXIS
     Route: 048
     Dates: start: 20190630, end: 20190702
  3. AERIUS [Concomitant]
     Route: 048
     Dates: start: 20190613, end: 20190615
  4. PREDNISOLON [Concomitant]
     Active Substance: PREDNISOLONE
     Indication: PROPHYLAXIS
     Route: 042
     Dates: start: 20190614, end: 20190614
  5. LYRICA [Concomitant]
     Active Substance: PREGABALIN
     Indication: NEURALGIA
     Route: 048
  6. DRONABINOL. [Concomitant]
     Active Substance: DRONABINOL
     Indication: PAIN
     Route: 048
     Dates: start: 20190417
  7. PANTOPRAZOL [Concomitant]
     Active Substance: PANTOPRAZOLE SODIUM
     Dosage: STOMACH PROTECTION
     Route: 048
  8. PREDNISOLON [Concomitant]
     Active Substance: PREDNISOLONE
     Route: 042
     Dates: start: 20190701, end: 20190701
  9. OCRELIZUMAB. [Suspect]
     Active Substance: OCRELIZUMAB
     Indication: MULTIPLE SCLEROSIS
     Route: 042
     Dates: start: 20190614, end: 20190701
  10. AERIUS [Concomitant]
     Indication: PROPHYLAXIS
     Route: 048
     Dates: start: 20190630, end: 20190702
  11. RANITIDIN [Concomitant]
     Active Substance: RANITIDINE HYDROCHLORIDE
     Route: 048
     Dates: start: 20190613, end: 20190615
  12. IBUPROFEN. [Concomitant]
     Active Substance: IBUPROFEN
     Dosage: PAIN RELIEF OF NEUROPATHIC COMPLAINTS
     Route: 048
  13. DOBENDAN DIREKT [Concomitant]
     Indication: OROPHARYNGEAL PAIN
     Dosage: DEFINITION OF THE INTERVAL: AS REQUIRED, LOZENGES
     Route: 048
     Dates: start: 20190417

REACTIONS (1)
  - Varicella zoster virus infection [Unknown]

NARRATIVE: CASE EVENT DATE: 201910
